FAERS Safety Report 21793399 (Version 1)
Quarter: 2022Q4

REPORT INFORMATION
  Report Type: Spontaneous
  Country: US (occurrence: US)
  Receive Date: 20221229
  Receipt Date: 20221229
  Transmission Date: 20230112
  Serious: No
  Sender: FDA-Public Use
  Company Number: US-FDC-2022USSPO00196

PATIENT
  Age: 83 Year
  Sex: Female
  Weight: 165 kg

DRUGS (2)
  1. TIMOLOL MALEATE [Suspect]
     Active Substance: TIMOLOL MALEATE
     Indication: Intraocular pressure increased
     Route: 047
     Dates: start: 2022
  2. TIMOLOL MALEATE [Suspect]
     Active Substance: TIMOLOL MALEATE

REACTIONS (3)
  - Incorrect dose administered [Unknown]
  - Liquid product physical issue [Unknown]
  - Product container issue [Unknown]

NARRATIVE: CASE EVENT DATE: 20221214
